FAERS Safety Report 25570021 (Version 1)
Quarter: 2025Q3

REPORT INFORMATION
  Report Type: Spontaneous
  Country: EU (occurrence: EU)
  Receive Date: 20250717
  Receipt Date: 20250717
  Transmission Date: 20251021
  Serious: Yes (Other)
  Sender: NOVARTIS
  Company Number: EU-002147023-NVSC2025GR111328

PATIENT
  Sex: Male

DRUGS (1)
  1. IPTACOPAN [Suspect]
     Active Substance: IPTACOPAN
     Indication: Nephropathy
     Route: 065

REACTIONS (3)
  - Complement factor C3 decreased [Unknown]
  - Blood creatinine increased [Unknown]
  - Proteinuria [Unknown]
